FAERS Safety Report 20501855 (Version 1)
Quarter: 2022Q1

REPORT INFORMATION
  Report Type: Spontaneous
  Country: FR (occurrence: FR)
  Receive Date: 20220222
  Receipt Date: 20220222
  Transmission Date: 20220424
  Serious: Yes (Other)
  Sender: FDA-Public Use
  Company Number: None

PATIENT
  Age: 20 Year
  Sex: Female

DRUGS (7)
  1. QUETIAPINE [Suspect]
     Active Substance: QUETIAPINE
     Indication: Product used for unknown indication
     Dosage: 300 MILLIGRAM, QD (2 TABLETS/DAY)
     Route: 048
     Dates: start: 20220107
  2. CANNABIS SATIVA SUBSP. INDICA TOP [Suspect]
     Active Substance: CANNABIS SATIVA SUBSP. INDICA TOP
     Indication: Product used for unknown indication
     Dosage: UNK, QD ((2 SEALS/DAY))
     Route: 055
  3. COCAINE [Suspect]
     Active Substance: COCAINE
     Indication: Product used for unknown indication
     Dosage: UNK UNK, Q3H (1 TRACE EVERY 3H, 1-2G/DAY)
     Route: 045
  4. COCAINE [Suspect]
     Active Substance: COCAINE
     Dosage: UNK (1 TRACE OR 1 GRAM ANNOUNCED)
     Route: 045
     Dates: start: 20220111, end: 20220111
  5. VALIUM [Suspect]
     Active Substance: DIAZEPAM
     Indication: Product used for unknown indication
     Dosage: 10 MILLIGRAM, QD (8 TABLETS/ DAY
     Route: 048
  6. VALIUM [Suspect]
     Active Substance: DIAZEPAM
     Dosage: 10 MILLIGRAM (12 TABLETS REPORTED)
     Route: 065
     Dates: start: 20220110, end: 20220111
  7. QUETIAPINE [Suspect]
     Active Substance: QUETIAPINE
     Indication: Product used for unknown indication
     Dosage: 300 MILLIGRAM (3 OR 5 TABLETS (BY NASAL ROUTE) REPORTED
     Route: 045
     Dates: start: 20220110, end: 20220111

REACTIONS (3)
  - Substance abuse [Unknown]
  - Dysarthria [Recovered/Resolved]
  - Intentional product misuse [Unknown]

NARRATIVE: CASE EVENT DATE: 20220111
